FAERS Safety Report 15316810 (Version 2)
Quarter: 2018Q3

REPORT INFORMATION
  Report Type: Report from Study
  Country: None (occurrence: CA)
  Receive Date: 20180824
  Receipt Date: 20180831
  Transmission Date: 20181010
  Serious: Yes (Disabling, Other)
  Sender: FDA-Public Use
  Company Number: CA-ABBVIE-18S-028-2463812-00

PATIENT
  Age: 64 Year
  Sex: Male
  Weight: 90.8 kg

DRUGS (1)
  1. LUPRON DEPOT [Suspect]
     Active Substance: LEUPROLIDE ACETATE
     Indication: PROSTATE CANCER
     Route: 030
     Dates: start: 20170306

REACTIONS (6)
  - Joint injury [Recovering/Resolving]
  - Discomfort [Recovering/Resolving]
  - Gait disturbance [Not Recovered/Not Resolved]
  - Patella fracture [Not Recovered/Not Resolved]
  - Pallor [Not Recovered/Not Resolved]
  - Road traffic accident [Recovering/Resolving]

NARRATIVE: CASE EVENT DATE: 201808
